FAERS Safety Report 26103376 (Version 1)
Quarter: 2025Q4

REPORT INFORMATION
  Report Type: Report from Study
  Country: MX (occurrence: MX)
  Receive Date: 20251129
  Receipt Date: 20251129
  Transmission Date: 20260118
  Serious: Yes (Death, Hospitalization)
  Sender: ROCHE
  Company Number: MX-ROCHE-10000447233

PATIENT
  Age: 37 Year
  Sex: Male

DRUGS (1)
  1. POLIVY [Suspect]
     Active Substance: POLATUZUMAB VEDOTIN-PIIQ
     Indication: Diffuse large B-cell lymphoma refractory
     Dosage: PATIENT ONLY HAD THE FIRST APPLICATION.
     Route: 042
     Dates: start: 20251017, end: 20251017

REACTIONS (2)
  - Gastric perforation [Fatal]
  - Haemorrhage [Fatal]

NARRATIVE: CASE EVENT DATE: 20251020
